FAERS Safety Report 15314253 (Version 1)
Quarter: 2018Q3

REPORT INFORMATION
  Report Type: Spontaneous
  Country: US (occurrence: US)
  Receive Date: 20180824
  Receipt Date: 20180824
  Transmission Date: 20181010
  Serious: No
  Sender: FDA-Public Use
  Company Number: US-PFIZER INC-2018340453

PATIENT
  Age: 69 Year
  Sex: Male

DRUGS (10)
  1. ASPIRIN 81 [Concomitant]
     Active Substance: ASPIRIN
     Dosage: UNK
  2. DIPHENOXYLATE [Concomitant]
     Active Substance: DIPHENOXYLATE
     Dosage: UNK (2.5?0.02)
  3. GLIPIZIDE. [Concomitant]
     Active Substance: GLIPIZIDE
     Dosage: 5 MG, UNK
  4. METOPROLOL TARTRAS [Concomitant]
     Dosage: 25 MG, UNK
  5. BUMETANIDE. [Concomitant]
     Active Substance: BUMETANIDE
     Dosage: 2 MG, UNK
  6. PERCOCET [OXYCODONE HYDROCHLORIDE;PARACETAMOL] [Concomitant]
     Dosage: 1 DF, UNK [OXYCODONE HYDROCHLORIDE: 10MG/ PARACETAMOL: 325 MG]
  7. METOPROLOL TARTRAS [Concomitant]
     Dosage: 50 MG, UNK
  8. SUTENT [Suspect]
     Active Substance: SUNITINIB MALATE
     Indication: RENAL CANCER
     Dosage: 25 MG, CYCLIC (TAKE 1 CAPSULE BY MOUTH EVERY DAY 4 WEEKS ON 2 WEEKS OFF)
     Route: 048
     Dates: start: 20180813
  9. OMEPRAZOLE. [Concomitant]
     Active Substance: OMEPRAZOLE
     Dosage: 20 MG, UNK
  10. ATORVASTATIN [Concomitant]
     Active Substance: ATORVASTATIN
     Dosage: 20 MG, UNK

REACTIONS (4)
  - Scar pain [Unknown]
  - Chest pain [Unknown]
  - Diarrhoea [Unknown]
  - Abdominal pain [Unknown]
